FAERS Safety Report 7139184-3 (Version None)
Quarter: 2010Q4

REPORT INFORMATION
  Report Type: 
  Country: None (occurrence: None)
  Receive Date: 20101206
  Receipt Date: 20101130
  Transmission Date: 20110411
  Serious: Yes (Death, Other)
  Sender: FDA-Public Use
  Company Number: US-CELGENEUS-163-21880-10120288

PATIENT
  Sex: Male

DRUGS (3)
  1. REVLIMID [Suspect]
     Indication: MULTIPLE MYELOMA
     Route: 048
     Dates: start: 20101110, end: 20101101
  2. BLOOD TRANSFUSION [Concomitant]
     Dosage: 2 PINTS A DAY FOR 3 DAYS
     Route: 065
     Dates: end: 20101116
  3. HYDRATION [Concomitant]
     Route: 051

REACTIONS (2)
  - DEATH [None]
  - PLATELET COUNT DECREASED [None]
